FAERS Safety Report 9707732 (Version 1)
Quarter: 2013Q4

REPORT INFORMATION
  Report Type: Report from Study
  Country: TR (occurrence: TR)
  Receive Date: 20131125
  Receipt Date: 20131125
  Transmission Date: 20140711
  Serious: Yes (Hospitalization)
  Sender: FDA-Public Use
  Company Number: TR-US-EMD SERONO, INC.-7251219

PATIENT
  Age: 9 Year
  Sex: Male
  Weight: 18 kg

DRUGS (2)
  1. SAIZEN [Suspect]
     Indication: GROWTH HORMONE DEFICIENCY
     Route: 058
     Dates: start: 201302, end: 20131112
  2. KALINOR /00031402/ [Suspect]
     Indication: HYPOKALAEMIA
     Route: 048
     Dates: start: 200706

REACTIONS (2)
  - Blood urea increased [Recovering/Resolving]
  - Blood creatine increased [Recovering/Resolving]
